FAERS Safety Report 16832854 (Version 1)
Quarter: 2019Q3

REPORT INFORMATION
  Report Type: Spontaneous
  Country: US (occurrence: US)
  Receive Date: 20190730
  Receipt Date: 20190730
  Transmission Date: 20191005
  Serious: Yes (Hospitalization)
  Sender: FDA-Public Use
  Company Number: None

PATIENT
  Age: 69 Year
  Sex: Male

DRUGS (1)
  1. CAPECITIBINE [Suspect]
     Active Substance: CAPECITABINE
     Indication: NEOPLASM MALIGNANT
     Dates: start: 20190708

REACTIONS (4)
  - Urticaria [None]
  - Rash [None]
  - Malaise [None]
  - Sepsis [None]

NARRATIVE: CASE EVENT DATE: 201907
